FAERS Safety Report 9709404 (Version 1)
Quarter: 2013Q4

REPORT INFORMATION
  Report Type: Spontaneous
  Country: US (occurrence: US)
  Receive Date: 20131126
  Receipt Date: 20131126
  Transmission Date: 20140711
  Serious: Yes (Hospitalization)
  Sender: FDA-Public Use
  Company Number: US-AMGEN-USASP2013082657

PATIENT
  Age: 68 Year
  Sex: Female

DRUGS (1)
  1. ENBREL [Suspect]
     Indication: PSORIASIS
     Dosage: 50 MG, 2 TIMES/WK
     Route: 065
     Dates: start: 20130716, end: 20130726

REACTIONS (3)
  - Knee arthroplasty [Recovered/Resolved]
  - Tonsillar disorder [Not Recovered/Not Resolved]
  - Psoriasis [Not Recovered/Not Resolved]
